FAERS Safety Report 7273451-8 (Version None)
Quarter: 2011Q1

REPORT INFORMATION
  Report Type: 
  Country: None (occurrence: None)
  Receive Date: 20110203
  Receipt Date: 20110131
  Transmission Date: 20110831
  Serious: No
  Sender: FDA-Public Use
  Company Number: US-PFIZER INC-2011022410

PATIENT
  Sex: Female
  Weight: 59 kg

DRUGS (3)
  1. PROTONIX [Suspect]
     Indication: HERNIA
  2. PROTONIX [Suspect]
     Indication: GASTROOESOPHAGEAL REFLUX DISEASE
     Dosage: 40 MG, 1X/DAY
     Route: 048
     Dates: start: 20101215, end: 20110122
  3. PREDNISOLONE [Concomitant]
     Dosage: 0.5 MG, 1X/DAY

REACTIONS (4)
  - COUGH [None]
  - THROAT IRRITATION [None]
  - DYSPHONIA [None]
  - GLOSSODYNIA [None]
